FAERS Safety Report 22204832 (Version 1)
Quarter: 2023Q2

REPORT INFORMATION
  Report Type: Spontaneous
  Country: DE (occurrence: DE)
  Receive Date: 20230413
  Receipt Date: 20230413
  Transmission Date: 20230721
  Serious: Yes (Hospitalization, Other)
  Sender: FDA-Public Use
  Company Number: DE-BRISTOL-MYERS SQUIBB COMPANY-2023-049874

PATIENT
  Age: 59 Year
  Sex: Male

DRUGS (3)
  1. NIVOLUMAB [Suspect]
     Active Substance: NIVOLUMAB
     Indication: Oesophageal squamous cell carcinoma
     Dates: start: 202011
  2. NIVOLUMAB [Suspect]
     Active Substance: NIVOLUMAB
     Dosage: 06/2021-09/2021 1ST-4TH CYCLE NIVOLUMAB (480 MG) (19-26TH CYCLE).
     Dates: start: 202106, end: 202109
  3. NIVOLUMAB [Suspect]
     Active Substance: NIVOLUMAB
     Dosage: 10/2021-12/2021 27TH-32ND CYCLE NIVOLUMAB (240MG).?01/2022-02/2022 33RD-36TH CYCLE NIVOLUMAB (240 MG
     Dates: start: 202110, end: 202112

REACTIONS (2)
  - Skin disorder [Unknown]
  - Malignant neoplasm progression [Unknown]

NARRATIVE: CASE EVENT DATE: 20210801
